FAERS Safety Report 4440414-7 (Version None)
Quarter: 2004Q3

REPORT INFORMATION
  Report Type: 
  Country: None (occurrence: None)
  Receive Date: 20040728
  Receipt Date: 20040322
  Transmission Date: 20050211
  Serious: No
  Sender: FDA-Public Use
  Company Number: USA040362741

PATIENT
  Age: 45 Year
  Sex: Female
  Weight: 50 kg

DRUGS (5)
  1. STRATTERA [Suspect]
     Indication: ATTENTION DEFICIT/HYPERACTIVITY DISORDER
     Dosage: 40 MG DAY
     Dates: start: 20040316
  2. IMODIUM [Concomitant]
  3. BEANO (ALPHA-D-GALACTOSIDASE) [Concomitant]
  4. PAMINE (HYOSCINE METHOBROMIDE) [Concomitant]
  5. CIPRO (CIPROFLOXACIN HYDOCHLORIDE) [Concomitant]

REACTIONS (4)
  - INITIAL INSOMNIA [None]
  - PRURITUS [None]
  - RASH [None]
  - SOMNOLENCE [None]
